FAERS Safety Report 24763640 (Version 5)
Quarter: 2025Q1

REPORT INFORMATION
  Report Type: Spontaneous
  Country: US (occurrence: US)
  Receive Date: 20241223
  Receipt Date: 20250130
  Transmission Date: 20250408
  Serious: Yes (Disabling)
  Sender: SANOFI AVENTIS
  Company Number: US-SA-2024SA373972

PATIENT
  Age: 59 Year
  Sex: Male

DRUGS (13)
  1. DUPIXENT [Suspect]
     Active Substance: DUPILUMAB
     Indication: Asthma
     Dosage: 300 MG, QOW
     Route: 058
     Dates: start: 2024
  2. ALBUTEROL [Concomitant]
     Active Substance: ALBUTEROL
  3. AZITHROMYCIN [Concomitant]
     Active Substance: AZITHROMYCIN
  4. BROVANA [Concomitant]
     Active Substance: ARFORMOTEROL TARTRATE
  5. CENTRUM [ASCORBIC ACID;BIOTIN;CALCIUM PANTOTHENATE;CYANOCOBALAMIN;ERGO [Concomitant]
  6. GUAIFENESIN [Concomitant]
     Active Substance: GUAIFENESIN
  7. LASIX [Concomitant]
     Active Substance: FUROSEMIDE
  8. METFORMIN HYDROCHLORIDE [Concomitant]
     Active Substance: METFORMIN HYDROCHLORIDE
  9. POTASSIUM CHLORIDE [Concomitant]
     Active Substance: POTASSIUM CHLORIDE
  10. PREDNISONE [Concomitant]
     Active Substance: PREDNISONE
  11. LYRICA [Concomitant]
     Active Substance: PREGABALIN
  12. TORADOL [Concomitant]
     Active Substance: KETOROLAC TROMETHAMINE
  13. IBUPROFEN [Concomitant]
     Active Substance: IBUPROFEN

REACTIONS (7)
  - Pain [Not Recovered/Not Resolved]
  - Lacrimation increased [Recovered/Resolved]
  - Myalgia [Unknown]
  - Pain in extremity [Unknown]
  - Injection site pain [Recovered/Resolved]
  - Injection site swelling [Unknown]
  - Eye irritation [Unknown]

NARRATIVE: CASE EVENT DATE: 20240101
